FAERS Safety Report 11424815 (Version 1)
Quarter: 2015Q3

REPORT INFORMATION
  Report Type: Spontaneous
  Country: US (occurrence: US)
  Receive Date: 20150821
  Receipt Date: 20150821
  Transmission Date: 20151125
  Serious: No
  Sender: FDA-Public Use
  Company Number: US-ELI_LILLY_AND_COMPANY-US201211007673

PATIENT
  Age: 56 Year
  Sex: Female

DRUGS (2)
  1. HUMULIN 70/30 [Suspect]
     Active Substance: INSULIN HUMAN
     Indication: TYPE 2 DIABETES MELLITUS
     Dosage: 110 U, BID
  2. HUMULIN R [Suspect]
     Active Substance: INSULIN HUMAN
     Indication: TYPE 2 DIABETES MELLITUS
     Dosage: 10 U, QD

REACTIONS (4)
  - Eating disorder [Unknown]
  - Drug dose omission [Not Recovered/Not Resolved]
  - Blood glucose increased [Unknown]
  - Fear [Unknown]

NARRATIVE: CASE EVENT DATE: 201211
